FAERS Safety Report 8761252 (Version 1)
Quarter: 2012Q4

REPORT INFORMATION
  Report Type: 
  Country: ES (occurrence: ES)
  Receive Date: 20120830
  Receipt Date: 20120830
  Transmission Date: 20130627
  Serious: Yes (Other)
  Sender: FDA-Public Use
  Company Number: ES-GLAXOSMITHKLINE-B0826413A

PATIENT
  Age: 40 Year
  Sex: Female

DRUGS (2)
  1. ZEFFIX [Suspect]
     Indication: VIRAL HEPATITIS CARRIER
     Dosage: 100MG Per day
     Route: 048
     Dates: start: 20120402, end: 20120505
  2. LIORESAL [Concomitant]
     Indication: MUSCLE SPASTICITY
     Dosage: 25MG Per day
     Route: 048
     Dates: start: 2002

REACTIONS (2)
  - Musculoskeletal disorder [Recovered/Resolved]
  - Motor dysfunction [None]
